FAERS Safety Report 6993080-0 (Version None)
Quarter: 2010Q3

REPORT INFORMATION
  Report Type: 
  Country: None (occurrence: None)
  Receive Date: 20100917
  Receipt Date: 20100702
  Transmission Date: 20110219
  Serious: Yes (Other)
  Sender: FDA-Public Use
  Company Number: US-ASTRAZENECA-2010SE30991

PATIENT
  Age: 32 Year
  Sex: Female

DRUGS (2)
  1. SEROQUEL [Suspect]
     Indication: SLEEP DISORDER
     Dosage: 20 TABLETS OF SEROQUEL 200 MG
     Route: 048
  2. SEROQUEL [Suspect]
     Route: 048
     Dates: start: 20100101

REACTIONS (3)
  - FALL [None]
  - INTENTIONAL OVERDOSE [None]
  - SUICIDE ATTEMPT [None]
